FAERS Safety Report 19063940 (Version 1)
Quarter: 2021Q1

REPORT INFORMATION
  Report Type: Spontaneous
  Country: DE (occurrence: DE)
  Receive Date: 20210326
  Receipt Date: 20210326
  Transmission Date: 20210420
  Serious: Yes (Hospitalization)
  Sender: FDA-Public Use
  Company Number: DE-TEVA-2021-DE-1893433

PATIENT
  Age: 14 Year
  Sex: Female
  Weight: 60 kg

DRUGS (4)
  1. METAMIZOL TROPFEN 500MG/ML [Suspect]
     Active Substance: METAMIZOLE SODIUM
     Indication: SUICIDAL IDEATION
     Dosage: NOT CLEAR
     Route: 048
     Dates: start: 20200610, end: 20200610
  2. OMEGA?3 ACIDS [Suspect]
     Active Substance: OMEGA-3 FATTY ACIDS
     Indication: SUICIDAL IDEATION
     Dosage: 4 DOSAGE FORMS DAILY;
     Route: 048
     Dates: start: 20200610, end: 20200610
  3. WEIN [Suspect]
     Active Substance: WINE
     Indication: SUICIDAL IDEATION
     Dosage: NOT CLEAR
     Route: 048
     Dates: start: 20200610, end: 20200610
  4. IBUPROFEN 800 MG [Suspect]
     Active Substance: IBUPROFEN
     Indication: SUICIDAL IDEATION
     Dosage: DAILY DOSE: 4800 MILLIGRAM EVERY DAYS 6 SEPARATED DOSES
     Route: 048
     Dates: start: 20200610, end: 20200610

REACTIONS (2)
  - Toxicity to various agents [Recovered/Resolved]
  - Intentional overdose [Recovered/Resolved]

NARRATIVE: CASE EVENT DATE: 20200610
